FAERS Safety Report 8190730-0 (Version None)
Quarter: 2012Q1

REPORT INFORMATION
  Report Type: 
  Country: None (occurrence: None)
  Receive Date: 20120221
  Receipt Date: 20111207
  Transmission Date: 20120608
  Serious: No
  Sender: FDA-Public Use
  Company Number: 1000026091

PATIENT
  Age: 25 Year
  Sex: Female

DRUGS (4)
  1. VITAMIN D (VITAMIN D) (VITAMIN D) [Concomitant]
  2. VIIBRYD [Suspect]
     Indication: DEPRESSION
     Dosage: 10 MG (10 MG, 1 IN 1 D), ORAL
     Route: 048
     Dates: start: 20111202, end: 20111206
  3. TRAMADOL HCL [Concomitant]
  4. PHENYLADE (PHENYLADE) (PHENYLADE) [Concomitant]

REACTIONS (1)
  - NIGHTMARE [None]
